FAERS Safety Report 13439436 (Version 1)
Quarter: 2017Q2

REPORT INFORMATION
  Report Type: Spontaneous
  Country: RU (occurrence: RU)
  Receive Date: 20170413
  Receipt Date: 20170413
  Transmission Date: 20170830
  Serious: Yes (Death, Hospitalization)
  Sender: FDA-Public Use
  Company Number: RU-SA-2017SA063527

PATIENT
  Age: 71 Year
  Sex: Male

DRUGS (2)
  1. ELOXATIN [Suspect]
     Active Substance: OXALIPLATIN
     Route: 042
  2. TUTABIN [Suspect]
     Active Substance: CAPECITABINE
     Route: 048

REACTIONS (2)
  - Myocardial infarction [Fatal]
  - Blood disorder [Fatal]
